FAERS Safety Report 9753129 (Version 1)
Quarter: 2013Q4

REPORT INFORMATION
  Report Type: Spontaneous
  Country: US (occurrence: US)
  Receive Date: 20131213
  Receipt Date: 20131213
  Transmission Date: 20140711
  Serious: No
  Sender: FDA-Public Use
  Company Number: US-GILEAD-2010-0026389

PATIENT
  Sex: Male
  Weight: 68.04 kg

DRUGS (9)
  1. LETAIRIS [Suspect]
     Indication: PULMONARY ARTERIAL HYPERTENSION
     Route: 048
     Dates: start: 20090716
  2. SILDENAFIL [Concomitant]
  3. DILTIAZEM [Concomitant]
  4. FUROSEMIDE [Concomitant]
  5. COUMADIN [Concomitant]
  6. NEXIUM [Concomitant]
  7. LEVOTHYROXINE [Concomitant]
  8. VITAMIN D [Concomitant]
  9. OXYGEN [Concomitant]

REACTIONS (3)
  - Secretion discharge [Unknown]
  - Dysphonia [Unknown]
  - Sinus disorder [Unknown]
